FAERS Safety Report 19444088 (Version 5)
Quarter: 2021Q3

REPORT INFORMATION
  Report Type: Spontaneous
  Country: JP (occurrence: JP)
  Receive Date: 20210621
  Receipt Date: 20210925
  Transmission Date: 20211014
  Serious: No
  Sender: FDA-Public Use
  Company Number: NVSC2021JP137421

PATIENT
  Age: 8 Decade

DRUGS (1)
  1. RIVASTACH [Suspect]
     Active Substance: RIVASTIGMINE
     Indication: DEMENTIA ALZHEIMER^S TYPE
     Dosage: UNK
     Route: 062

REACTIONS (4)
  - Feeding disorder [Recovered/Resolved]
  - Asthenia [Recovered/Resolved]
  - Cholinergic syndrome [Recovered/Resolved]
  - Blood cholinesterase decreased [Recovered/Resolved]
